FAERS Safety Report 5055208-1 (Version None)
Quarter: 2006Q3

REPORT INFORMATION
  Report Type: 
  Country: None (occurrence: None)
  Receive Date: 20060719
  Receipt Date: 20060710
  Transmission Date: 20061208
  Serious: Yes (Other)
  Sender: FDA-Public Use
  Company Number: PHEH2006US08837

PATIENT
  Age: 73 Year
  Sex: Female

DRUGS (1)
  1. LOTREL [Suspect]
     Indication: HYPERTENSION
     Dosage: 5/10 MG, BID
     Route: 048
     Dates: start: 20051001

REACTIONS (2)
  - SKIN CANCER [None]
  - THERAPEUTIC PROCEDURE [None]
